FAERS Safety Report 6957772-1 (Version None)
Quarter: 2010Q3

REPORT INFORMATION
  Report Type: 
  Country: None (occurrence: None)
  Receive Date: 20100830
  Receipt Date: 20100830
  Transmission Date: 20110219
  Serious: Yes (Hospitalization)
  Sender: FDA-Public Use
  Company Number: None

PATIENT
  Age: 61 Year
  Sex: Female
  Weight: 72 kg

DRUGS (1)
  1. AMOXICILLIN [Suspect]
     Indication: URINARY TRACT INFECTION
     Dosage: 500 MG TID PO
     Route: 048
     Dates: start: 20100812, end: 20100822

REACTIONS (4)
  - ANGIOEDEMA [None]
  - HYPOAESTHESIA ORAL [None]
  - RASH PRURITIC [None]
  - URTICARIA [None]
